FAERS Safety Report 5772886-X (Version None)
Quarter: 2008Q2

REPORT INFORMATION
  Report Type: 
  Country: None (occurrence: None)
  Receive Date: 20080613
  Receipt Date: 20080602
  Transmission Date: 20081010
  Serious: Yes (Other)
  Sender: FDA-Public Use
  Company Number: US-PFIZER INC-2008046664

PATIENT
  Sex: Female
  Weight: 60.8 kg

DRUGS (1)
  1. LYRICA [Suspect]
     Indication: BACK PAIN
     Dates: start: 20080301, end: 20080501

REACTIONS (4)
  - AGEUSIA [None]
  - ALOPECIA [None]
  - ANOREXIA [None]
  - WEIGHT DECREASED [None]
